FAERS Safety Report 22035527 (Version 1)
Quarter: 2023Q1

REPORT INFORMATION
  Report Type: Spontaneous
  Country: RO (occurrence: RO)
  Receive Date: 20230224
  Receipt Date: 20230224
  Transmission Date: 20230417
  Serious: Yes (Other)
  Sender: FDA-Public Use
  Company Number: RO-AMGEN-ROUSP2023023593

PATIENT
  Age: 47 Year
  Sex: Female

DRUGS (6)
  1. LEUCOVORIN [Suspect]
     Active Substance: LEUCOVORIN
     Indication: Colorectal cancer metastatic
     Dosage: UNK
     Route: 042
     Dates: start: 20201123
  2. OXALIPLATIN [Suspect]
     Active Substance: OXALIPLATIN
     Indication: Colorectal cancer metastatic
     Dosage: UNK
     Route: 042
     Dates: start: 20201123
  3. FLUOROURACIL [Suspect]
     Active Substance: FLUOROURACIL
     Indication: Colorectal cancer metastatic
     Dosage: UNK
     Route: 042
     Dates: start: 20201123
  4. VECTIBIX [Suspect]
     Active Substance: PANITUMUMAB
     Indication: Colorectal cancer metastatic
     Dosage: UNK?SOLUTION FOR INJECTION
     Route: 042
  5. VECTIBIX [Suspect]
     Active Substance: PANITUMUMAB
     Dosage: UNK?SOLUTION FOR INJECTION
     Route: 042
     Dates: start: 20201123
  6. DOXYCYCLINE [Concomitant]
     Active Substance: DOXYCYCLINE
     Indication: Prophylaxis
     Dosage: 100 MILLIGRAM, BID?200 MG
     Dates: start: 20201123

REACTIONS (8)
  - Cholecystitis chronic [None]
  - Hepatic neoplasm [None]
  - Lymphoma [None]
  - SARS-CoV-2 test positive [None]
  - Haematotoxicity [None]
  - Skin toxicity [None]
  - Therapy partial responder [None]
  - Gastrointestinal toxicity [None]

NARRATIVE: CASE EVENT DATE: 20210101
